FAERS Safety Report 8528870-6 (Version None)
Quarter: 2012Q3

REPORT INFORMATION
  Report Type: 
  Country: None (occurrence: None)
  Receive Date: 20120723
  Receipt Date: 20120717
  Transmission Date: 20120928
  Serious: No
  Sender: FDA-Public Use
  Company Number: US-PFIZER INC-2012173315

PATIENT
  Sex: Male

DRUGS (1)
  1. SUTENT [Suspect]
     Indication: THYMOMA MALIGNANT
     Dosage: 25 MG, UNK
     Dates: start: 20120523, end: 20120523

REACTIONS (3)
  - FATIGUE [None]
  - DECREASED APPETITE [None]
  - DRUG INTOLERANCE [None]
